FAERS Safety Report 4675887-8 (Version None)
Quarter: 2005Q2

REPORT INFORMATION
  Report Type: 
  Country: None (occurrence: None)
  Receive Date: 20050527
  Receipt Date: 20050427
  Transmission Date: 20051028
  Serious: Yes (Death, Life-Threatening, Other)
  Sender: FDA-Public Use
  Company Number: JP-BRISTOL-MYERS SQUIBB COMPANY-12949178

PATIENT
  Age: 68 Year
  Sex: Male

DRUGS (4)
  1. TAXOL [Suspect]
     Indication: GASTRIC CANCER
     Route: 042
     Dates: start: 20041129, end: 20050307
  2. CYCLOPHOSPHAMIDE [Suspect]
     Dates: start: 20050313
  3. CISPLATIN [Suspect]
  4. IRINOTECAN HCL [Suspect]

REACTIONS (3)
  - INTERSTITIAL LUNG DISEASE [None]
  - LYMPHANGIOSIS CARCINOMATOSA [None]
  - STAPHYLOCOCCAL SEPSIS [None]
